FAERS Safety Report 7189864-9 (Version None)
Quarter: 2010Q4

REPORT INFORMATION
  Report Type: 
  Country: None (occurrence: None)
  Receive Date: 20101123
  Receipt Date: 20100914
  Transmission Date: 20110411
  Serious: No
  Sender: FDA-Public Use
  Company Number: 018768

PATIENT
  Sex: Male
  Weight: 102 kg

DRUGS (5)
  1. CIMZIA [Suspect]
     Indication: CROHN'S DISEASE
     Dosage: 400 MG 1X/2 WEEKS, 400 MG INDUCTION DOSE SUBCUTANEOUS
     Route: 058
     Dates: start: 20100913
  2. IMURAN [Concomitant]
  3. LOPERAMIDE [Concomitant]
  4. TUMS [Concomitant]
  5. KLONOPIN [Concomitant]

REACTIONS (3)
  - NASAL CONGESTION [None]
  - NAUSEA [None]
  - SINUS HEADACHE [None]
